FAERS Safety Report 5051208-6 (Version None)
Quarter: 2006Q3

REPORT INFORMATION
  Report Type: 
  Country: None (occurrence: None)
  Receive Date: 20060714
  Receipt Date: 20060707
  Transmission Date: 20061208
  Serious: Yes (Hospitalization, Other)
  Sender: FDA-Public Use
  Company Number: US-BRISTOL-MYERS SQUIBB COMPANY-13436050

PATIENT
  Age: 54 Year
  Sex: Male
  Weight: 57 kg

DRUGS (3)
  1. ERBITUX [Suspect]
     Indication: NEOPLASM MALIGNANT
     Dosage: 1ST DOSE: 17MAY06
     Dates: start: 20060621, end: 20060621
  2. DOCETAXEL [Suspect]
     Indication: NEOPLASM MALIGNANT
     Dates: start: 20060621, end: 20060621
  3. RADIOTHERAPY [Suspect]
     Indication: NEOPLASM MALIGNANT
     Dates: start: 20060706, end: 20060706

REACTIONS (5)
  - DERMATITIS ACNEIFORM [None]
  - MUCOSAL INFLAMMATION [None]
  - NEISSERIA INFECTION [None]
  - PYREXIA [None]
  - STOMATITIS [None]
